FAERS Safety Report 4929287-3 (Version None)
Quarter: 2006Q1

REPORT INFORMATION
  Report Type: 
  Country: None (occurrence: None)
  Receive Date: 20060223
  Receipt Date: 20060131
  Transmission Date: 20060701
  Serious: Yes (Other)
  Sender: FDA-Public Use
  Company Number: US200601002244

PATIENT
  Age: 80 Year
  Sex: Female

DRUGS (4)
  1. FORTEO [Suspect]
     Indication: OSTEOPOROSIS
     Dates: start: 20050201
  2. FORTEO PEN (250MCG/ML) 9FORTEO PEN 2500MCG/ML (3ML)) PEN, DISPOSABLE [Concomitant]
  3. CALCIUM CARBONATE (CALCIUM CARBONATE) TABLET [Concomitant]
  4. MIACALCIN [Concomitant]

REACTIONS (17)
  - ARTHRALGIA [None]
  - BACK PAIN [None]
  - BONE DENSITY DECREASED [None]
  - GROIN PAIN [None]
  - INTERVERTEBRAL DISC DEGENERATION [None]
  - MOBILITY DECREASED [None]
  - PAIN [None]
  - PAIN IN EXTREMITY [None]
  - PATHOLOGICAL FRACTURE [None]
  - PHARMACEUTICAL PRODUCT COMPLAINT [None]
  - PUBIC RAMI FRACTURE [None]
  - RADIATION ASSOCIATED PAIN [None]
  - SHOULDER PAIN [None]
  - SPINAL DISORDER [None]
  - SPONDYLOLISTHESIS [None]
  - SPONDYLOLYSIS [None]
  - WALKING AID USER [None]
